APPROVED DRUG PRODUCT: LIVTENCITY
Active Ingredient: MARIBAVIR
Strength: 200MG
Dosage Form/Route: TABLET;ORAL
Application: N215596 | Product #001
Applicant: TAKEDA PHARMACEUTICALS USA INC
Approved: Nov 23, 2021 | RLD: Yes | RS: Yes | Type: RX

PATENTS:
Patent 12447170 | Expires: Nov 18, 2042
Patent 12447169 | Expires: Oct 27, 2031
Patent 12213989 | Expires: Nov 18, 2042
Patent 12433907 | Expires: Nov 18, 2042
Patent 11684632 | Expires: Jan 4, 2032
Patent 12295940 | Expires: Oct 11, 2043

EXCLUSIVITY:
Code: NCE | Date: Nov 23, 2026
Code: ODE-388 | Date: Nov 23, 2028